FAERS Safety Report 24031717 (Version 2)
Quarter: 2024Q3

REPORT INFORMATION
  Report Type: Spontaneous
  Country: FR (occurrence: FR)
  Receive Date: 20240629
  Receipt Date: 20240706
  Transmission Date: 20241016
  Serious: Yes (Life-Threatening, Hospitalization)
  Sender: MACLEODS
  Company Number: FR-MACLEODS PHARMA-MAC2024047858

PATIENT

DRUGS (2)
  1. TRAMADOL [Suspect]
     Active Substance: TRAMADOL\TRAMADOL HYDROCHLORIDE
     Indication: Sickle cell disease
     Route: 048
  2. TRAMADOL [Suspect]
     Active Substance: TRAMADOL\TRAMADOL HYDROCHLORIDE
     Indication: Analgesic therapy

REACTIONS (9)
  - Respiratory acidosis [Recovering/Resolving]
  - Altered state of consciousness [Recovered/Resolved]
  - Toxicity to various agents [Recovering/Resolving]
  - Clonic convulsion [Recovered/Resolved]
  - Miosis [Recovered/Resolved]
  - Heart rate increased [Recovering/Resolving]
  - Hypotonia [Recovered/Resolved]
  - Analgesic drug level increased [Recovered/Resolved]
  - Accidental overdose [Recovering/Resolving]
